FAERS Safety Report 6485760-0 (Version None)
Quarter: 2009Q4

REPORT INFORMATION
  Report Type: 
  Country: None (occurrence: None)
  Receive Date: 20091209
  Receipt Date: 20091203
  Transmission Date: 20100525
  Serious: Yes (Hospitalization, Other)
  Sender: FDA-Public Use
  Company Number: US-ABBOTT-09P-163-0609871-00

PATIENT
  Sex: Female
  Weight: 72.64 kg

DRUGS (9)
  1. ZEMPLAR [Suspect]
     Indication: HYPERPARATHYROIDISM
     Dates: start: 20040101, end: 20090301
  2. ZEMPLAR [Suspect]
  3. UNKNOWN HEART PILL [Concomitant]
     Indication: CARDIAC FAILURE CONGESTIVE
  4. FUROSEMIDE [Concomitant]
     Indication: CARDIAC FAILURE CONGESTIVE
  5. SIMVASTATIN [Concomitant]
     Indication: DRUG USE FOR UNKNOWN INDICATION
  6. METOPROLOL [Concomitant]
     Indication: CARDIAC FAILURE CONGESTIVE
  7. METOPROLOL [Concomitant]
     Indication: HYPERTENSION
  8. LISINOPRIL [Concomitant]
     Indication: HYPERTENSION
  9. SODIUM BICARBONATE IN PLASTIC CONTAINER [Concomitant]
     Indication: RENAL DISORDER

REACTIONS (8)
  - CARDIAC FAILURE CONGESTIVE [None]
  - EPISTAXIS [None]
  - MUSCLE SPASMS [None]
  - PAIN IN EXTREMITY [None]
  - PALPITATIONS [None]
  - RENAL FAILURE [None]
  - SWELLING [None]
  - VOMITING [None]
